FAERS Safety Report 5801751-4 (Version None)
Quarter: 2008Q3

REPORT INFORMATION
  Report Type: 
  Country: None (occurrence: None)
  Receive Date: 20080703
  Receipt Date: 20080703
  Transmission Date: 20090109
  Serious: No
  Sender: FDA-Public Use
  Company Number: None

PATIENT
  Age: 52 Year
  Sex: Female
  Weight: 109 kg

DRUGS (1)
  1. METHADONE HCL [Suspect]
     Dosage: 20 MG BID PO
     Route: 048
     Dates: start: 20080624, end: 20080625

REACTIONS (3)
  - RESPIRATORY DEPRESSION [None]
  - SEDATION [None]
  - UNRESPONSIVE TO STIMULI [None]
